FAERS Safety Report 12304576 (Version 1)
Quarter: 2016Q2

REPORT INFORMATION
  Report Type: Spontaneous
  Country: BG (occurrence: BG)
  Receive Date: 20160426
  Receipt Date: 20160426
  Transmission Date: 20160815
  Serious: Yes (Hospitalization, Other)
  Sender: FDA-Public Use
  Company Number: PHHY2016BG051432

PATIENT
  Age: 59 Year
  Sex: Male

DRUGS (1)
  1. VOTRIENT [Suspect]
     Active Substance: PAZOPANIB HYDROCHLORIDE
     Indication: RENAL CANCER
     Dosage: 800 MG, QD
     Route: 048
     Dates: start: 201303, end: 20160220

REACTIONS (4)
  - Peripheral arterial occlusive disease [Unknown]
  - Intermittent claudication [Recovered/Resolved]
  - Arterial thrombosis [Unknown]
  - Arterial insufficiency [Recovering/Resolving]

NARRATIVE: CASE EVENT DATE: 20160217
